FAERS Safety Report 5606543-7 (Version None)
Quarter: 2008Q1

REPORT INFORMATION
  Report Type: 
  Country: None (occurrence: None)
  Receive Date: 20080129
  Receipt Date: 20080118
  Transmission Date: 20080703
  Serious: Yes (Hospitalization, Other)
  Sender: FDA-Public Use
  Company Number: DE-ASTRAZENECA-2008PK00162

PATIENT
  Age: 60 Year
  Sex: Female

DRUGS (1)
  1. FASLODEX [Suspect]
     Indication: BREAST CANCER
     Route: 030
     Dates: start: 20071001

REACTIONS (6)
  - AGEUSIA [None]
  - ANAEMIA [None]
  - DEAFNESS [None]
  - EAR PAIN [None]
  - EYE PAIN [None]
  - HEADACHE [None]
